FAERS Safety Report 12899279 (Version 12)
Quarter: 2020Q3

REPORT INFORMATION
  Report Type: Other
  Country: DE (occurrence: DE)
  Receive Date: 20161101
  Receipt Date: 20200827
  Transmission Date: 20201102
  Serious: Yes (Hospitalization, Other)
  Sender: FDA-Public Use
  Company Number: DE-ROCHE-1844357

PATIENT
  Age: 54 Year
  Sex: Female
  Weight: 91 kg

DRUGS (17)
  1. TOCILIZUMAB. [Suspect]
     Active Substance: TOCILIZUMAB
     Route: 058
     Dates: start: 20170108
  2. NOVALGIN (METAMIZOLE SODIUM) [Concomitant]
     Active Substance: METAMIZOLE SODIUM
     Indication: RHEUMATOID ARTHRITIS
     Route: 048
     Dates: start: 20160115
  3. PREDNISOLON [Concomitant]
     Active Substance: PREDNISOLONE
     Dosage: 25?30 MG
     Route: 048
     Dates: start: 20161222, end: 20170102
  4. PANTOPRAZOL [Concomitant]
     Active Substance: PANTOPRAZOLE SODIUM
     Route: 048
     Dates: start: 20160501, end: 20161010
  5. PREDNISOLON [Concomitant]
     Active Substance: PREDNISOLONE
     Route: 048
     Dates: start: 20160915
  6. TOCILIZUMAB. [Suspect]
     Active Substance: TOCILIZUMAB
     Route: 058
     Dates: start: 20160815, end: 20161020
  7. TOCILIZUMAB. [Suspect]
     Active Substance: TOCILIZUMAB
     Route: 058
     Dates: start: 20161204, end: 20161211
  8. SALOFALK [Concomitant]
     Route: 048
     Dates: start: 20160515
  9. TOCILIZUMAB. [Suspect]
     Active Substance: TOCILIZUMAB
     Route: 058
     Dates: start: 20160122, end: 20160708
  10. SALOFALK [Concomitant]
     Route: 048
     Dates: start: 20160501
  11. SALOFALK [Concomitant]
     Route: 054
     Dates: start: 20160515
  12. OMEPRAZOL [Concomitant]
     Active Substance: OMEPRAZOLE
     Route: 048
     Dates: start: 20161011
  13. TOCILIZUMAB. [Suspect]
     Active Substance: TOCILIZUMAB
     Route: 058
     Dates: start: 20150703, end: 20151218
  14. OMEPRAZOL [Concomitant]
     Active Substance: OMEPRAZOLE
     Route: 048
     Dates: start: 20150801, end: 20160501
  15. PREDNISOLON [Concomitant]
     Active Substance: PREDNISOLONE
     Indication: RHEUMATOID ARTHRITIS
     Route: 048
     Dates: start: 20160701, end: 20160901
  16. TOCILIZUMAB. [Suspect]
     Active Substance: TOCILIZUMAB
     Indication: RHEUMATOID ARTHRITIS
     Route: 058
     Dates: start: 20150129, end: 20150604
  17. SALOFALK [Concomitant]
     Route: 054
     Dates: start: 20160501

REACTIONS (4)
  - Bronchitis [Recovered/Resolved]
  - Rhinitis [Recovered/Resolved]
  - Pleurisy [Recovered/Resolved]
  - Ovarian cyst [Recovered/Resolved with Sequelae]

NARRATIVE: CASE EVENT DATE: 20150301
